FAERS Safety Report 9596308 (Version 2)
Quarter: 2013Q4

REPORT INFORMATION
  Report Type: Spontaneous
  Country: CA (occurrence: CA)
  Receive Date: 20131004
  Receipt Date: 20131017
  Transmission Date: 20140711
  Serious: Yes (Hospitalization)
  Sender: FDA-Public Use
  Company Number: CA-GLAXOSMITHKLINE-A1042728A

PATIENT
  Age: 42 Year
  Sex: Female
  Weight: 81.65 kg

DRUGS (5)
  1. NICODERM CQ CLEAR 21MG [Suspect]
     Indication: SMOKING CESSATION THERAPY
     Dosage: 21MG PER DAY
     Route: 062
     Dates: start: 20130819, end: 20130827
  2. MULTIPLE MEDICATIONS [Concomitant]
     Indication: BIPOLAR DISORDER
     Route: 065
     Dates: start: 20130906
  3. LITHIUM CARBONATE [Concomitant]
     Indication: DRUG THERAPY
     Route: 065
  4. LORAZEPAM [Concomitant]
     Indication: ANXIETY
     Route: 065
  5. OLANZAPINE [Concomitant]
     Indication: SLEEP DISORDER THERAPY
     Route: 065

REACTIONS (7)
  - Diarrhoea [Recovered/Resolved]
  - Nausea [Recovered/Resolved]
  - Depressed mood [Not Recovered/Not Resolved]
  - Fatigue [Recovered/Resolved]
  - Therapeutic response increased [Unknown]
  - Product adhesion issue [Unknown]
  - Wrong technique in drug usage process [Unknown]
